FAERS Safety Report 13522379 (Version 1)
Quarter: 2017Q2

REPORT INFORMATION
  Report Type: Spontaneous
  Country: US (occurrence: US)
  Receive Date: 20170508
  Receipt Date: 20170508
  Transmission Date: 20170830
  Serious: Yes (Other)
  Sender: FDA-Public Use
  Company Number: None

PATIENT
  Age: 43 Year
  Sex: Female
  Weight: 85.5 kg

DRUGS (4)
  1. CIPROFLOXACIN HCL 250 MG TAB [Suspect]
     Active Substance: BENZYL ALCOHOL\CIPROFLOXACIN HYDROCHLORIDE\HYDROCORTISONE
     Indication: URINARY TRACT INFECTION
     Dosage: ?          QUANTITY:10 TABLET(S);?
     Route: 048
     Dates: start: 20170425, end: 20170429
  2. IBUPROFEN. [Concomitant]
     Active Substance: IBUPROFEN
  3. MONO-LINYAH [Suspect]
     Active Substance: ETHINYL ESTRADIOL\NORGESTIMATE
  4. ONE A DAY WOMEN^S MULTIVITAMIN (GENERIC, GUMMY) [Concomitant]

REACTIONS (5)
  - Neuropathy peripheral [None]
  - Burning sensation [None]
  - Paraesthesia [None]
  - Nerve injury [None]
  - Discomfort [None]

NARRATIVE: CASE EVENT DATE: 20170506
